FAERS Safety Report 9033282 (Version 1)
Quarter: 2013Q1

REPORT INFORMATION
  Report Type: Spontaneous
  Country: US (occurrence: US)
  Receive Date: 20130128
  Receipt Date: 20130128
  Transmission Date: 20140127
  Serious: No
  Sender: FDA-Public Use
  Company Number: US-009507513-1301USA012789

PATIENT
  Sex: Female
  Weight: 56.69 kg

DRUGS (4)
  1. MIRALAX [Suspect]
     Indication: IRRITABLE BOWEL SYNDROME
     Dosage: UNK, TID
     Route: 048
  2. MIRALAX [Suspect]
     Indication: IRRITABLE BOWEL SYNDROME
  3. MIRALAX [Suspect]
     Indication: RECTAL PROLAPSE
  4. MIRALAX [Suspect]
     Indication: MEDICAL OBSERVATION

REACTIONS (2)
  - Inappropriate schedule of drug administration [Unknown]
  - Off label use [Unknown]
